FAERS Safety Report 24683617 (Version 1)
Quarter: 2024Q4

REPORT INFORMATION
  Report Type: Spontaneous
  Country: CN (occurrence: CN)
  Receive Date: 20241202
  Receipt Date: 20241202
  Transmission Date: 20250114
  Serious: Yes (Hospitalization)
  Sender: STRIDES
  Company Number: CN-STRIDES ARCOLAB LIMITED-2024SP015716

PATIENT
  Age: 4 Decade
  Sex: Female

DRUGS (15)
  1. PREDNISOLONE [Suspect]
     Active Substance: PREDNISOLONE
     Indication: Neuronal ceroid lipofuscinosis
     Dosage: UNK
     Route: 048
  2. MYCOPHENOLATE MOFETIL [Suspect]
     Active Substance: MYCOPHENOLATE MOFETIL
     Indication: Neuronal ceroid lipofuscinosis
     Dosage: UNK
     Route: 065
  3. DONEPEZIL [Suspect]
     Active Substance: DONEPEZIL
     Indication: Neuronal ceroid lipofuscinosis
     Dosage: UNK
     Route: 065
  4. VALPROATE SODIUM [Suspect]
     Active Substance: VALPROATE SODIUM
     Indication: Neuronal ceroid lipofuscinosis
     Dosage: UNK
     Route: 065
  5. VALPROATE SODIUM [Suspect]
     Active Substance: VALPROATE SODIUM
     Dosage: 1 GRAM, QD
     Route: 065
  6. LAMOTRIGINE [Suspect]
     Active Substance: LAMOTRIGINE
     Indication: Neuronal ceroid lipofuscinosis
     Dosage: 0.5 MILLIGRAM, QD
     Route: 065
  7. LAMOTRIGINE [Suspect]
     Active Substance: LAMOTRIGINE
     Dosage: UNK
     Route: 065
  8. TRIHEXYPHENIDYL [Suspect]
     Active Substance: TRIHEXYPHENIDYL
     Indication: Neuronal ceroid lipofuscinosis
     Dosage: 4 MILLIGRAM PER GRAM
     Route: 065
  9. TRIHEXYPHENIDYL [Suspect]
     Active Substance: TRIHEXYPHENIDYL
     Dosage: UNK
     Route: 065
  10. LEVODOPA [Suspect]
     Active Substance: LEVODOPA
     Indication: Neuronal ceroid lipofuscinosis
     Dosage: 0.375 GRAM, QD
     Route: 065
  11. LEVODOPA [Suspect]
     Active Substance: LEVODOPA
     Dosage: UNK (GRADUALLY INCREASED)
     Route: 065
  12. HUMAN IMMUNOGLOBULIN G [Suspect]
     Active Substance: HUMAN IMMUNOGLOBULIN G
     Indication: Neuronal ceroid lipofuscinosis
     Dosage: UNK, SINGLE (HIGHDOSE, ONE TIME)
     Route: 042
  13. METHYLPREDNISOLONE [Suspect]
     Active Substance: METHYLPREDNISOLONE
     Indication: Neuronal ceroid lipofuscinosis
     Dosage: UNK, SINGLE (ONE TIME)
     Route: 042
  14. CLONAZEPAM [Suspect]
     Active Substance: CLONAZEPAM
     Indication: Neuronal ceroid lipofuscinosis
     Dosage: UNK
     Route: 065
  15. IDEBENONE [Suspect]
     Active Substance: IDEBENONE
     Indication: Neuronal ceroid lipofuscinosis
     Dosage: UNK
     Route: 065

REACTIONS (4)
  - Autoimmune thyroiditis [Unknown]
  - Hypothyroidism [Unknown]
  - Therapy non-responder [Unknown]
  - Off label use [Unknown]
